FAERS Safety Report 9263093 (Version 1)
Quarter: 2013Q1

REPORT INFORMATION
  Report Type: Spontaneous
  Country: US (occurrence: None)
  Receive Date: 20121212
  Receipt Date: 20121212
  Transmission Date: 20140127
  Serious: No
  Sender: FDA-Public Use
  Company Number: 1209USA001718

PATIENT
  Age: 64 Year
  Sex: Male

DRUGS (7)
  1. PEGINTRON [Suspect]
     Indication: HEPATITIS C
     Route: 058
     Dates: start: 20120430
  2. REBETOL [Suspect]
     Indication: HEPATITIS C
     Dates: start: 20120430
  3. VICTRELIS [Suspect]
     Indication: HEPATITIS C
     Dates: start: 20120604
  4. PROMACTA [Concomitant]
  5. DIOVAN [Concomitant]
  6. ZYRTEC [Concomitant]
  7. LACTULOSE [Concomitant]

REACTIONS (8)
  - Diarrhoea [None]
  - Headache [None]
  - Nausea [None]
  - Vomiting [None]
  - Fatigue [None]
  - Asthenia [None]
  - Weight decreased [None]
  - Dysgeusia [None]
